FAERS Safety Report 8759703 (Version 7)
Quarter: 2016Q4

REPORT INFORMATION
  Report Type: Spontaneous
  Country: JP (occurrence: JP)
  Receive Date: 20120829
  Receipt Date: 20161121
  Transmission Date: 20170207
  Serious: Yes (Hospitalization, Other)
  Sender: FDA-Public Use
  Company Number: JP-GILEAD-2012-0060460

PATIENT
  Age: 65 Year
  Sex: Female
  Weight: 45.3 kg

DRUGS (5)
  1. HEPSERA [Suspect]
     Active Substance: ADEFOVIR DIPIVOXIL
     Dosage: 10 MG, QD
     Route: 048
     Dates: start: 20060927, end: 20120820
  2. PHOSPHATE                          /01318702/ [Concomitant]
     Indication: PRODUCT USED FOR UNKNOWN INDICATION
     Dosage: 900 MG, QD
     Route: 065
  3. ZEFIX [Suspect]
     Active Substance: LAMIVUDINE
     Indication: HEPATITIS B
     Dosage: 10 MG, 1D
     Route: 048
     Dates: start: 2000
  4. HEPSERA [Suspect]
     Active Substance: ADEFOVIR DIPIVOXIL
     Indication: HEPATITIS B
     Dosage: 10 MG, 1D
     Route: 048
     Dates: start: 200610
  5. HEPSERA [Suspect]
     Active Substance: ADEFOVIR DIPIVOXIL
     Dosage: 10 MG, QD
     Route: 048
     Dates: end: 20120821

REACTIONS (15)
  - Metastases to bone [Unknown]
  - Fanconi syndrome acquired [Unknown]
  - Hypophosphataemia [Unknown]
  - Bone pain [Recovered/Resolved]
  - Hip fracture [Unknown]
  - Renal glycosuria [Unknown]
  - Femoral neck fracture [Unknown]
  - Osteomalacia [Unknown]
  - Hypouricaemia [Unknown]
  - Acquired aminoaciduria [Unknown]
  - Metabolic acidosis [Unknown]
  - Blood alkaline phosphatase increased [Unknown]
  - Pain in extremity [Unknown]
  - Arthralgia [Unknown]
  - Musculoskeletal chest pain [Unknown]

NARRATIVE: CASE EVENT DATE: 2011
